FAERS Safety Report 7069492-6 (Version None)
Quarter: 2010Q4

REPORT INFORMATION
  Report Type: 
  Country: None (occurrence: None)
  Receive Date: 20101028
  Receipt Date: 20100104
  Transmission Date: 20110411
  Serious: No
  Sender: FDA-Public Use
  Company Number: US-WYE-H13024610

PATIENT

DRUGS (1)
  1. AMIODARONE [Suspect]

REACTIONS (1)
  - EYE DISORDER [None]
